FAERS Safety Report 16325920 (Version 1)
Quarter: 2019Q2

REPORT INFORMATION
  Report Type: Spontaneous
  Country: DE (occurrence: DE)
  Receive Date: 20190517
  Receipt Date: 20190517
  Transmission Date: 20190711
  Serious: Yes (Other)
  Sender: FDA-Public Use
  Company Number: DE-MYLANLABS-2019M1045988

PATIENT
  Age: 25 Year
  Sex: Male

DRUGS (1)
  1. BACLOFEN. [Suspect]
     Active Substance: BACLOFEN
     Indication: PRODUCT USED FOR UNKNOWN INDICATION
     Dosage: 40 MILLIGRAM, UNK
     Route: 048

REACTIONS (5)
  - Sleep disorder [Recovered/Resolved]
  - Sleep apnoea syndrome [Recovered/Resolved]
  - Sleep attacks [Recovered/Resolved]
  - Nightmare [Recovered/Resolved]
  - Overdose [Recovered/Resolved]
